FAERS Safety Report 6673085-X (Version None)
Quarter: 2010Q2

REPORT INFORMATION
  Report Type: 
  Country: None (occurrence: None)
  Receive Date: 20100408
  Receipt Date: 20100408
  Transmission Date: 20101027
  Serious: Yes (Other)
  Sender: FDA-Public Use
  Company Number: PHHO2007SE11285

PATIENT
  Sex: Female
  Weight: 59.7 kg

DRUGS (5)
  1. ACLASTA/ZOLEDRONATE T29581+A+SOLINJ [Suspect]
     Indication: OSTEOPOROSIS POSTMENOPAUSAL
     Dosage: 5 MG ONCE A YEAR
     Route: 042
     Dates: start: 20060217
  2. CALCIUM [Concomitant]
     Indication: OSTEOPOROSIS POSTMENOPAUSAL
  3. VITAMIN D [Concomitant]
     Indication: OSTEOPOROSIS POSTMENOPAUSAL
  4. FIBERFORM [Concomitant]
     Indication: CONSTIPATION
     Route: 048
     Dates: start: 20060101
  5. XALATAN [Concomitant]
     Indication: GLAUCOMA
     Dates: start: 20061015

REACTIONS (2)
  - PLASTIC SURGERY [None]
  - SKIN CANCER [None]
